FAERS Safety Report 4411215-0 (Version None)
Quarter: 2004Q3

REPORT INFORMATION
  Report Type: 
  Country: None (occurrence: None)
  Receive Date: 20040727
  Receipt Date: 20040304
  Transmission Date: 20050211
  Serious: Yes (Hospitalization, Other)
  Sender: FDA-Public Use
  Company Number: JP-JNJFOC-20040506813

PATIENT
  Age: 38 Year
  Sex: Male

DRUGS (1)
  1. PEPCID AC TABLET (FAMOTIDINE) TABLETS [Suspect]
     Indication: ABDOMINAL DISCOMFORT
     Dosage: 10 MG, 1 IN 1 DAY, ORAL
     Route: 048
     Dates: start: 20030906, end: 20030906

REACTIONS (4)
  - ASTHENIA [None]
  - HEPATITIS FULMINANT [None]
  - MALAISE [None]
  - URTICARIA [None]
